FAERS Safety Report 21496774 (Version 1)
Quarter: 2022Q4

REPORT INFORMATION
  Report Type: Spontaneous
  Country: FR (occurrence: FR)
  Receive Date: 20221022
  Receipt Date: 20221022
  Transmission Date: 20230112
  Serious: Yes (Hospitalization)
  Sender: FDA-Public Use
  Company Number: None

PATIENT
  Age: 75 Year
  Sex: Male
  Weight: 88 kg

DRUGS (2)
  1. NAPROXEN SODIUM [Suspect]
     Active Substance: NAPROXEN SODIUM
     Indication: Arthralgia
     Dosage: 1100 MILLIGRAM DAILY; 2 TABLETS OF 550MG PER DAY FOR 5 DAYS
     Dates: start: 20220826, end: 20220902
  2. KETOPROFEN [Suspect]
     Active Substance: KETOPROFEN
     Indication: Synovitis
     Dosage: 200 MILLIGRAM DAILY; 2 TABLETS OF 100MG/DAY
     Dates: start: 20220901, end: 20220908

REACTIONS (1)
  - Diverticular perforation [Recovering/Resolving]

NARRATIVE: CASE EVENT DATE: 20220907
